FAERS Safety Report 7710139-0 (Version None)
Quarter: 2011Q3

REPORT INFORMATION
  Report Type: 
  Country: None (occurrence: None)
  Receive Date: 20110825
  Receipt Date: 20110811
  Transmission Date: 20111222
  Serious: Yes (Other)
  Sender: FDA-Public Use
  Company Number: FR-GENENTECH-323258

PATIENT
  Sex: Male

DRUGS (1)
  1. LUCENTIS [Suspect]
     Indication: MACULAR DEGENERATION
     Dosage: UNK UNK, UNK
     Route: 031
     Dates: start: 20090401

REACTIONS (3)
  - FATIGUE [None]
  - MYOCARDIAL INFARCTION [None]
  - HEART RATE DECREASED [None]
